FAERS Safety Report 5637348-9 (Version None)
Quarter: 2008Q1

REPORT INFORMATION
  Report Type: 
  Country: None (occurrence: None)
  Receive Date: 20080225
  Receipt Date: 20080214
  Transmission Date: 20080703
  Serious: Yes (Other)
  Sender: FDA-Public Use
  Company Number: CO-PFIZER INC-2008015482

PATIENT
  Sex: Male

DRUGS (1)
  1. ACCURETIC [Suspect]
     Indication: HYPERTENSION
     Dosage: TEXT:20 MG/ 12.5 MG
     Route: 048
     Dates: start: 20080206, end: 20080208

REACTIONS (5)
  - BRONCHOSPASM [None]
  - COUGH [None]
  - ECZEMA [None]
  - PRURITUS [None]
  - RASH [None]
